FAERS Safety Report 20229562 (Version 3)
Quarter: 2022Q4

REPORT INFORMATION
  Report Type: Report from Study
  Country: CO (occurrence: CO)
  Receive Date: 20211225
  Receipt Date: 20221216
  Transmission Date: 20230113
  Serious: Yes (Other)
  Sender: FDA-Public Use
  Company Number: CO-NOVARTISPH-NVSC2021CO246810

PATIENT
  Sex: Male

DRUGS (6)
  1. COSENTYX [Suspect]
     Active Substance: SECUKINUMAB
     Indication: Psoriasis
     Dosage: 300 MG, QMO
     Route: 058
     Dates: start: 201908
  2. COSENTYX [Suspect]
     Active Substance: SECUKINUMAB
     Dosage: 300 MG, QMO
     Route: 058
  3. ATORVASTATIN [Suspect]
     Active Substance: ATORVASTATIN
     Indication: Blood cholesterol
     Dosage: UNK, QD
     Route: 048
     Dates: start: 2016
  4. INSULIN GLULISINE [Concomitant]
     Active Substance: INSULIN GLULISINE
     Indication: Diabetes mellitus
     Dosage: UNK, QD 12 UNITS ON THE MORNING AND 14 UNITS
     Route: 058
     Dates: start: 2017
  5. INSULIN GLARGINE [Concomitant]
     Active Substance: INSULIN GLARGINE
     Indication: Diabetes mellitus
     Dosage: UNK, QD 58 UNITS
     Route: 058
     Dates: start: 2017
  6. METFORMIN [Concomitant]
     Active Substance: METFORMIN HYDROCHLORIDE
     Indication: Diabetes mellitus
     Dosage: 500 MG, QD
     Route: 048
     Dates: start: 2016

REACTIONS (2)
  - Tuberculosis [Unknown]
  - Disease susceptibility [Unknown]

NARRATIVE: CASE EVENT DATE: 20180101
